FAERS Safety Report 7749839-5 (Version None)
Quarter: 2011Q3

REPORT INFORMATION
  Report Type: 
  Country: None (occurrence: None)
  Receive Date: 20110914
  Receipt Date: 20110905
  Transmission Date: 20111222
  Serious: Yes (Hospitalization)
  Sender: FDA-Public Use
  Company Number: GB-SANOFI-AVENTIS-2011SA057590

PATIENT
  Age: 75 Year
  Sex: Female
  Weight: 53.3 kg

DRUGS (5)
  1. CITALOPRAM HYDROBROMIDE [Concomitant]
     Dates: start: 20110819, end: 20110820
  2. ENALAPRIL MALEATE [Concomitant]
  3. RILUZOLE [Suspect]
     Indication: MOTOR NEURONE DISEASE
     Route: 048
     Dates: start: 20110607, end: 20110722
  4. AMITRIPTYLINE HCL [Concomitant]
  5. BISOPROLOL FUMARATE [Concomitant]

REACTIONS (4)
  - DECREASED APPETITE [None]
  - CONFUSIONAL STATE [None]
  - HYPONATRAEMIA [None]
  - LETHARGY [None]
